FAERS Safety Report 9843286 (Version 1)
Quarter: 2014Q1

REPORT INFORMATION
  Report Type: Report from Study
  Country: MX (occurrence: MX)
  Receive Date: 20140124
  Receipt Date: 20140124
  Transmission Date: 20141002
  Serious: Yes (Other)
  Sender: FDA-Public Use
  Company Number: PHHY2013MX155302

PATIENT
  Age: 27 Year
  Sex: Female

DRUGS (6)
  1. SOM230 [Suspect]
     Indication: PITUITARY-DEPENDENT CUSHING^S SYNDROME
     Dosage: 0.6 MG, BID
     Route: 058
     Dates: start: 20121221
  2. CAPTOPRIL [Concomitant]
     Indication: HYPERTENSION
     Dosage: 25 MG, DAY
     Route: 048
     Dates: start: 201009, end: 20130215
  3. GLIBENCLAMIDE [Concomitant]
     Indication: DIABETES MELLITUS
     Dosage: 5 MG, Q8H
     Route: 048
     Dates: start: 201102, end: 20130215
  4. METFORMIN [Concomitant]
     Indication: DIABETES MELLITUS
     Dosage: 850 MG
     Route: 048
     Dates: start: 201102, end: 20130215
  5. PRAVASTATIN [Concomitant]
     Indication: HYPERCHOLESTEROLAEMIA
     Dosage: 20 MG, DAY
     Route: 048
     Dates: start: 201102, end: 20130215
  6. BENZAFIBRATO [Concomitant]
     Indication: HYPERCHOLESTEROLAEMIA
     Dosage: 20 MG, DAY
     Route: 048
     Dates: start: 201102, end: 20130215

REACTIONS (1)
  - Hyperglycaemia [Recovering/Resolving]
